FAERS Safety Report 10163538 (Version 1)
Quarter: 2014Q2

REPORT INFORMATION
  Report Type: Spontaneous
  Country: HR (occurrence: HR)
  Receive Date: 20140509
  Receipt Date: 20140509
  Transmission Date: 20141212
  Serious: No
  Sender: FDA-Public Use
  Company Number: HR-009507513-1405HRV005030

PATIENT
  Age: 60 Year
  Sex: Male

DRUGS (5)
  1. ESMERON [Suspect]
     Indication: INDUCTION OF ANAESTHESIA
     Dosage: 50 MG, ONCE
     Route: 042
     Dates: start: 20140507, end: 20140507
  2. DORMICUM (MIDAZOLAM HYDROCHLORIDE) [Concomitant]
     Indication: INDUCTION OF ANAESTHESIA
     Route: 042
  3. THIOPENTAL SODIUM [Concomitant]
     Indication: INDUCTION OF ANAESTHESIA
  4. FENTANYL [Concomitant]
     Indication: INDUCTION OF ANAESTHESIA
  5. AMONEX (AMOXICILLIN) [Concomitant]

REACTIONS (1)
  - Infusion site erythema [Recovered/Resolved]
